FAERS Safety Report 8465678-4 (Version None)
Quarter: 2012Q2

REPORT INFORMATION
  Report Type: 
  Country: None (occurrence: None)
  Receive Date: 20120626
  Receipt Date: 20120621
  Transmission Date: 20120825
  Serious: Yes (Other)
  Sender: FDA-Public Use
  Company Number: DE-ASTRAZENECA-2012SE41896

PATIENT
  Age: 63 Year
  Sex: Male
  Weight: 100 kg

DRUGS (20)
  1. SYMBICORT [Concomitant]
     Route: 055
     Dates: start: 20120321, end: 20120322
  2. BECLOMETHASONE DIPROPIONATE [Concomitant]
     Dates: start: 20120326
  3. NICOTINE [Concomitant]
     Route: 065
     Dates: start: 20120514, end: 20120515
  4. RANITIDINE [Concomitant]
     Route: 065
     Dates: start: 20120612
  5. SILDENAFIL [Concomitant]
     Route: 065
     Dates: start: 20120514, end: 20120611
  6. SIMVASTATIN [Concomitant]
     Route: 065
     Dates: start: 20120514, end: 20120611
  7. OMEPRAZOLE (PRISOLEC) [Suspect]
     Route: 048
     Dates: start: 20120522
  8. SILDENAFIL [Concomitant]
     Route: 065
     Dates: start: 20120321, end: 20120418
  9. LISINOPRIL [Concomitant]
     Dosage: UNK
     Dates: start: 20120326, end: 20120423
  10. SYMBICORT [Concomitant]
     Route: 055
     Dates: start: 20120514, end: 20120515
  11. LISINOPRIL [Concomitant]
     Dosage: UNK
     Dates: start: 20120215, end: 20120314
  12. NICOTINE [Concomitant]
     Route: 065
     Dates: start: 20120514, end: 20120521
  13. SIMVASTATIN [Concomitant]
     Route: 065
     Dates: start: 20120321, end: 20120418
  14. FUROSEMIDE [Concomitant]
     Dosage: UNK
     Dates: start: 20120321, end: 20120418
  15. LISINOPRIL [Concomitant]
     Dosage: UNK
     Dates: start: 20120514, end: 20120611
  16. BUDESONIDE [Concomitant]
     Route: 065
     Dates: start: 20120514, end: 20120611
  17. BUDESONIDE [Concomitant]
     Route: 065
     Dates: start: 20120321, end: 20120418
  18. FUROSEMIDE [Concomitant]
     Dosage: UNK
     Dates: start: 20120514, end: 20120611
  19. PHENYTOIN SODIUM [Concomitant]
     Route: 065
     Dates: start: 20120321
  20. VARENICLINE [Concomitant]
     Route: 065
     Dates: start: 20120522, end: 20120523

REACTIONS (3)
  - RASH MACULAR [None]
  - EYE SWELLING [None]
  - OEDEMA MOUTH [None]
